FAERS Safety Report 7068871-0 (Version None)
Quarter: 2010Q4

REPORT INFORMATION
  Report Type: 
  Country: None (occurrence: None)
  Receive Date: 20101028
  Receipt Date: 20101022
  Transmission Date: 20110411
  Serious: Yes (Death)
  Sender: FDA-Public Use
  Company Number: US-GILEAD-2010-0032850

PATIENT
  Age: 52 Year
  Sex: Male

DRUGS (13)
  1. LETAIRIS [Suspect]
     Indication: PULMONARY ARTERIAL HYPERTENSION
     Route: 048
     Dates: start: 20100806
  2. COUMADIN [Concomitant]
  3. TORSEMIDE [Concomitant]
  4. SPIRONOLACTONE [Concomitant]
  5. CEFAZOLIN [Concomitant]
  6. AMBIEN [Concomitant]
  7. ZOLOFT [Concomitant]
  8. COLACE [Concomitant]
  9. NEURONTIN [Concomitant]
  10. TRAMADOL HCL [Concomitant]
  11. OXYCODONE HCL [Concomitant]
  12. IRON [Concomitant]
  13. POTASSIUM CHLORIDE [Concomitant]

REACTIONS (1)
  - DEATH [None]
